FAERS Safety Report 9460824 (Version 1)
Quarter: 2013Q3

REPORT INFORMATION
  Report Type: Spontaneous
  Country: US (occurrence: US)
  Receive Date: 20130815
  Receipt Date: 20130815
  Transmission Date: 20140515
  Serious: Yes (Other)
  Sender: FDA-Public Use
  Company Number: US-JNJFOC-20130801117

PATIENT
  Sex: Male

DRUGS (2)
  1. VISINE [Suspect]
     Route: 048
  2. VISINE [Suspect]
     Indication: PRODUCT USED FOR UNKNOWN INDICATION
     Dosage: OVER THREE YEARS
     Route: 048

REACTIONS (2)
  - Poisoning [Unknown]
  - Intentional drug misuse [Unknown]
